FAERS Safety Report 23965033 (Version 3)
Quarter: 2024Q3

REPORT INFORMATION
  Report Type: Spontaneous
  Country: ES (occurrence: ES)
  Receive Date: 20240612
  Receipt Date: 20240708
  Transmission Date: 20241017
  Serious: Yes (Disabling, Other)
  Sender: AUROBINDO
  Company Number: ES-SA-SAC20240527001248

PATIENT
  Age: 63 Year
  Sex: Male
  Weight: 54 kg

DRUGS (3)
  1. METFORMIN [Suspect]
     Active Substance: METFORMIN HYDROCHLORIDE
     Indication: Product used for unknown indication
     Dosage: UNK
     Route: 065
     Dates: start: 2005
  2. INSULIN GLARGINE [Suspect]
     Active Substance: INSULIN GLARGINE
     Indication: Type 2 diabetes mellitus
     Dosage: 13 INTERNATIONAL UNIT, ONCE A DAY
     Route: 058
     Dates: start: 2020
  3. FIASP [Concomitant]
     Active Substance: INSULIN ASPART
     Indication: Type 2 diabetes mellitus
     Dosage: (1-1-1-1-1), ONCE A DAY
     Route: 058

REACTIONS (13)
  - Wheelchair user [Unknown]
  - Mental impairment [Unknown]
  - Weight decreased [Not Recovered/Not Resolved]
  - Injection site pain [Unknown]
  - Feeling abnormal [Unknown]
  - Anxiety [Unknown]
  - Gait inability [Unknown]
  - Nervousness [Unknown]
  - Blood glucose increased [Unknown]
  - Pain [Unknown]
  - Decreased appetite [Recovered/Resolved]
  - Product storage error [Unknown]
  - Device use issue [Unknown]

NARRATIVE: CASE EVENT DATE: 20230101
